FAERS Safety Report 19732226 (Version 2)
Quarter: 2021Q3

REPORT INFORMATION
  Report Type: Spontaneous
  Country: GB (occurrence: GB)
  Receive Date: 20210820
  Receipt Date: 20210823
  Transmission Date: 20211014
  Serious: Yes (Death, Hospitalization, Other)
  Sender: FDA-Public Use
  Company Number: GB-JAZZ-2021-GB-004900

PATIENT
  Age: 69 Year
  Sex: Female

DRUGS (2)
  1. VYXEOS [Suspect]
     Active Substance: CYTARABINE\DAUNORUBICIN
     Dosage: CYCLE 2
     Dates: start: 201903
  2. VYXEOS [Suspect]
     Active Substance: CYTARABINE\DAUNORUBICIN
     Indication: ACUTE MYELOID LEUKAEMIA
     Dosage: CYCLE 1
     Dates: start: 201901, end: 2019

REACTIONS (2)
  - Staphylococcal infection [Unknown]
  - Enterococcal infection [Unknown]

NARRATIVE: CASE EVENT DATE: 2019
